FAERS Safety Report 23100127 (Version 1)
Quarter: 2023Q4

REPORT INFORMATION
  Report Type: Spontaneous
  Country: US (occurrence: None)
  Receive Date: 20231020
  Receipt Date: 20231020
  Transmission Date: 20240109
  Serious: Yes (Hospitalization)
  Sender: FDA-Public Use
  Company Number: None

PATIENT
  Age: 77 Year
  Sex: Male
  Weight: 84 kg

DRUGS (1)
  1. HYDROCHLOROTHIAZIDE [Suspect]
     Active Substance: HYDROCHLOROTHIAZIDE
     Dosage: FREQUENCY : DAILY;?
     Route: 048
     Dates: start: 20221221, end: 20230106

REACTIONS (3)
  - Hyponatraemia [None]
  - Cardiac failure [None]
  - Hypervolaemia [None]

NARRATIVE: CASE EVENT DATE: 20230108
